FAERS Safety Report 7013283-9 (Version None)
Quarter: 2010Q3

REPORT INFORMATION
  Report Type: 
  Country: None (occurrence: None)
  Receive Date: 20100924
  Receipt Date: 20100915
  Transmission Date: 20110219
  Serious: Yes (Other)
  Sender: FDA-Public Use
  Company Number: PHHY2010US61514

PATIENT
  Sex: Female

DRUGS (1)
  1. FEMARA [Suspect]
     Dosage: 2.5 MG, QD
     Route: 048
     Dates: start: 19970101

REACTIONS (8)
  - BENIGN BREAST NEOPLASM [None]
  - BIOPSY BREAST [None]
  - BREAST MASS [None]
  - FALL [None]
  - HAND FRACTURE [None]
  - LOWER LIMB FRACTURE [None]
  - UPPER LIMB FRACTURE [None]
  - WRIST FRACTURE [None]
